FAERS Safety Report 6150543-8 (Version None)
Quarter: 2009Q2

REPORT INFORMATION
  Report Type: 
  Country: None (occurrence: None)
  Receive Date: 20090407
  Receipt Date: 20090407
  Transmission Date: 20091009
  Serious: Yes (Other)
  Sender: FDA-Public Use
  Company Number: None

PATIENT
  Age: 56 Year
  Sex: Male
  Weight: 95.2554 kg

DRUGS (1)
  1. LEVITRA [Suspect]
     Dosage: 10MG ONCE PER DAY PO
     Route: 048
     Dates: start: 20090320, end: 20090321

REACTIONS (1)
  - TINNITUS [None]
